FAERS Safety Report 7917615-6 (Version None)
Quarter: 2011Q4

REPORT INFORMATION
  Report Type: 
  Country: None (occurrence: None)
  Receive Date: 20111116
  Receipt Date: 20111104
  Transmission Date: 20120403
  Serious: Yes (Other)
  Sender: FDA-Public Use
  Company Number: US-ELI_LILLY_AND_COMPANY-US201111002987

PATIENT
  Age: 65 Year
  Sex: Female

DRUGS (3)
  1. NUVIGIL [Concomitant]
  2. CYMBALTA [Suspect]
     Indication: FIBROMYALGIA
     Dosage: 60 MG, QD
     Dates: start: 20110101, end: 20110801
  3. CYMBALTA [Suspect]
     Dosage: 60 MG, QOD
     Dates: start: 20110801, end: 20110901

REACTIONS (6)
  - COUGH [None]
  - BRONCHOPNEUMONIA [None]
  - PERICARDIAL EFFUSION [None]
  - ASTHMA [None]
  - HYPERSOMNIA [None]
  - GASTROOESOPHAGEAL REFLUX DISEASE [None]
